FAERS Safety Report 9016550 (Version 2)
Quarter: 2013Q1

REPORT INFORMATION
  Report Type: Spontaneous
  Country: US (occurrence: US)
  Receive Date: 20130117
  Receipt Date: 20130205
  Transmission Date: 20140127
  Serious: No
  Sender: FDA-Public Use
  Company Number: US-009507513-1301USA005507

PATIENT
  Sex: Female

DRUGS (1)
  1. NEXPLANON [Suspect]
     Dosage: UNK DF, UNK

REACTIONS (4)
  - Injury associated with device [Recovering/Resolving]
  - Puncture site pain [Recovering/Resolving]
  - Product closure removal difficult [Unknown]
  - Accidental exposure to product [Unknown]
